FAERS Safety Report 23973517 (Version 2)
Quarter: 2024Q3

REPORT INFORMATION
  Report Type: Spontaneous
  Country: US (occurrence: US)
  Receive Date: 20240613
  Receipt Date: 20240807
  Transmission Date: 20241017
  Serious: No
  Sender: BIOGEN
  Company Number: US-BIOGEN-2024BI01268253

PATIENT
  Age: 44 Year
  Sex: Female

DRUGS (1)
  1. SPINRAZA [Suspect]
     Active Substance: NUSINERSEN
     Indication: Spinal muscular atrophy
     Dosage: HAD 3 LOADING DOSE, LAST ONE WAS MAINTENANCE INJECTIONS (4TH)
     Route: 050
     Dates: start: 20240329

REACTIONS (4)
  - Post procedural fever [Recovered/Resolved]
  - Procedural pain [Recovered/Resolved]
  - Procedural vomiting [Recovered/Resolved]
  - Post lumbar puncture syndrome [Recovered/Resolved]

NARRATIVE: CASE EVENT DATE: 20240601
